FAERS Safety Report 25009517 (Version 2)
Quarter: 2025Q1

REPORT INFORMATION
  Report Type: Spontaneous
  Country: AT (occurrence: AT)
  Receive Date: 20250225
  Receipt Date: 20250311
  Transmission Date: 20250409
  Serious: Yes (Death, Life-Threatening)
  Sender: MERCK SHARP & DOHME LLC
  Company Number: None

PATIENT
  Age: 65 Year
  Sex: Male
  Weight: 80 kg

DRUGS (5)
  1. DAPTOMYCIN [Suspect]
     Active Substance: DAPTOMYCIN
     Route: 042
     Dates: start: 20250120
  2. PIPERACILLIN SODIUM\TAZOBACTAM SODIUM [Suspect]
     Active Substance: PIPERACILLIN SODIUM\TAZOBACTAM SODIUM
     Route: 042
     Dates: start: 20250115
  3. FOSFOMYCIN [Suspect]
     Active Substance: FOSFOMYCIN
     Route: 042
     Dates: start: 20250125, end: 20250127
  4. CASPOFUNGIN [Suspect]
     Active Substance: CASPOFUNGIN
     Route: 042
     Dates: start: 20250125
  5. LINEZOLID [Suspect]
     Active Substance: LINEZOLID
     Route: 042
     Dates: start: 20250121

REACTIONS (7)
  - Toxic epidermal necrolysis [Not Recovered/Not Resolved]
  - Haemodialysis [Not Recovered/Not Resolved]
  - Hepatic failure [Not Recovered/Not Resolved]
  - Gastrointestinal haemorrhage [Fatal]
  - Haemodynamic instability [Not Recovered/Not Resolved]
  - Enterococcal sepsis [Not Recovered/Not Resolved]
  - Paraplegia [Not Recovered/Not Resolved]

NARRATIVE: CASE EVENT DATE: 20250126
